FAERS Safety Report 4547072-1 (Version None)
Quarter: 2005Q1

REPORT INFORMATION
  Report Type: 
  Country: None (occurrence: None)
  Receive Date: 20050105
  Receipt Date: 20041220
  Transmission Date: 20050727
  Serious: Yes (Death)
  Sender: FDA-Public Use
  Company Number: PHO 2003-006

PATIENT
  Age: 81 Year
  Sex: Female

DRUGS (11)
  1. PHOTOFRIN [Suspect]
     Indication: ADENOCARCINOMA
     Dosage: MG
     Route: 042
     Dates: start: 20030214
  2. PHOTOFRIN [Suspect]
     Indication: BARRETT'S OESOPHAGUS
     Dosage: MG
     Route: 042
     Dates: start: 20030214
  3. BETAPACE [Concomitant]
  4. DIOVAN [Concomitant]
  5. NORVASC [Concomitant]
  6. PRANDIN [Concomitant]
  7. REGLAN [Concomitant]
  8. KLONOPIN [Concomitant]
  9. ASPIRIN [Concomitant]
  10. PROTONIX [Concomitant]
  11. NITROGLYCERIN [Concomitant]

REACTIONS (21)
  - ADENOCARCINOMA [None]
  - CHEST PAIN [None]
  - DEHYDRATION [None]
  - DIARRHOEA [None]
  - DYSPHAGIA [None]
  - GASTRITIS [None]
  - GASTROINTESTINAL MUCOSAL DISORDER [None]
  - HIATUS HERNIA [None]
  - INSOMNIA [None]
  - LOSS OF CONSCIOUSNESS [None]
  - LUNG NEOPLASM MALIGNANT [None]
  - METAPLASIA [None]
  - NAUSEA [None]
  - ODYNOPHAGIA [None]
  - OESOPHAGEAL DYSPLASIA [None]
  - OESOPHAGEAL ULCER [None]
  - PAIN [None]
  - PNEUMONIA [None]
  - PULMONARY EMBOLISM [None]
  - PULMONARY NECROSIS [None]
  - VOMITING [None]
